FAERS Safety Report 10097537 (Version 1)
Quarter: 2014Q2

REPORT INFORMATION
  Report Type: Spontaneous
  Country: US (occurrence: US)
  Receive Date: 20140423
  Receipt Date: 20140423
  Transmission Date: 20141212
  Serious: No
  Sender: FDA-Public Use
  Company Number: US-BIOGENIDEC-2014BI037158

PATIENT
  Sex: Female

DRUGS (5)
  1. TYSABRI [Suspect]
     Indication: MULTIPLE SCLEROSIS
     Route: 042
     Dates: start: 20130510
  2. VENLAFAXINE HCL [Concomitant]
     Dates: start: 20140220
  3. LOTEMAX [Concomitant]
     Dates: start: 20140220
  4. HYDROCODONE/ACETAMINOPHEN [Concomitant]
     Dates: start: 20140220
  5. TRAMADOL HCL [Concomitant]
     Dates: start: 20140206

REACTIONS (8)
  - Depression [Unknown]
  - Cognitive disorder [Unknown]
  - Anxiety [Unknown]
  - Sensory disturbance [Unknown]
  - Paraesthesia [Unknown]
  - Hypoaesthesia [Unknown]
  - Dyspraxia [Unknown]
  - Neuralgia [Unknown]
